FAERS Safety Report 10006603 (Version 1)
Quarter: 2014Q1

REPORT INFORMATION
  Report Type: Report from Study
  Country: US (occurrence: US)
  Receive Date: 20140313
  Receipt Date: 20140313
  Transmission Date: 20141002
  Serious: Yes (Hospitalization)
  Sender: FDA-Public Use
  Company Number: US-SA-2014SA032021

PATIENT
  Age: 81 Year
  Sex: Male

DRUGS (29)
  1. DRONEDARONE [Suspect]
     Indication: PRODUCT USED FOR UNKNOWN INDICATION
     Route: 065
  2. DABIGATRAN [Interacting]
     Indication: PRODUCT USED FOR UNKNOWN INDICATION
     Route: 065
  3. ISOSORBIDE DINITRATE [Concomitant]
  4. CARNITINE [Concomitant]
  5. CARTIA XT [Concomitant]
  6. FUROSEMIDE [Concomitant]
  7. BILBERRY [Concomitant]
  8. CARNITINE [Concomitant]
  9. NATURES OWN JOINT ENHANCE GLUCOSAMIDE AND CHONDROITIN COMPLEX [Concomitant]
  10. CALCIUM CITRATE [Concomitant]
  11. CRANBERRY EXTRACT [Concomitant]
  12. CYANOCOBALAMIN [Concomitant]
  13. VITAMIN D [Concomitant]
  14. ALL OTHER THERAPEUTIC PRODUCTS [Concomitant]
  15. LANTUS [Concomitant]
  16. ALL OTHER THERAPEUTIC PRODUCTS [Concomitant]
  17. NIACIN [Concomitant]
  18. BROMELAINS [Concomitant]
  19. VITAMIN B6 [Concomitant]
  20. ASCORBIC ACID [Concomitant]
  21. ALL OTHER THERAPEUTIC PRODUCTS [Concomitant]
  22. TORSEMIDE [Concomitant]
  23. COMBIGAN [Concomitant]
  24. VITAMIN C [Concomitant]
  25. HERBAL NOS/VITAMINS NOS [Concomitant]
  26. COENZYME Q10 [Concomitant]
  27. FISH OIL [Concomitant]
  28. RUSCUS ACULEATUS ^BUTCHER^S BROOM^ [Concomitant]
  29. RED YEAST RICE [Concomitant]

REACTIONS (2)
  - Haemorrhage [Unknown]
  - Drug interaction [Unknown]
